FAERS Safety Report 25337240 (Version 5)
Quarter: 2025Q4

REPORT INFORMATION
  Report Type: Spontaneous
  Country: IN (occurrence: IN)
  Receive Date: 20250520
  Receipt Date: 20251020
  Transmission Date: 20260118
  Serious: Yes (Other)
  Sender: PFIZER
  Company Number: IN-PFIZER INC-PV202500060358

PATIENT
  Age: 39 Year
  Sex: Female

DRUGS (1)
  1. CRIZOTINIB [Suspect]
     Active Substance: CRIZOTINIB
     Dosage: 250 MG, 2X/DAY
     Route: 048

REACTIONS (5)
  - Pulmonary oedema [Unknown]
  - Pneumonia [Unknown]
  - Vomiting [Unknown]
  - Infection [Unknown]
  - General physical health deterioration [Unknown]
